FAERS Safety Report 20974727 (Version 1)
Quarter: 2022Q2

REPORT INFORMATION
  Report Type: Spontaneous
  Country: US (occurrence: None)
  Receive Date: 20220617
  Receipt Date: 20220617
  Transmission Date: 20220721
  Serious: Yes (Other)
  Sender: FDA-Public Use
  Company Number: None

PATIENT
  Age: 43 Year
  Sex: Female
  Weight: 84.15 kg

DRUGS (5)
  1. PAXLOVID [Suspect]
     Active Substance: NIRMATRELVIR\RITONAVIR
     Indication: COVID-19
     Dosage: OTHER QUANTITY : 3 TABLET(S);?FREQUENCY : EVERY 12 HOURS;?
     Route: 048
     Dates: start: 20220616, end: 20220617
  2. Mucinex Fast Max as directed on bottle every 4 hours [Concomitant]
  3. ZICAM [Concomitant]
  4. ib profen [Concomitant]
  5. Multi vitamin [Concomitant]

REACTIONS (10)
  - Headache [None]
  - Abdominal discomfort [None]
  - Hypertension [None]
  - Palpitations [None]
  - Emotional distress [None]
  - Ocular discomfort [None]
  - Feeling abnormal [None]
  - Tremor [None]
  - Feeling jittery [None]
  - Vomiting [None]

NARRATIVE: CASE EVENT DATE: 20220616
